FAERS Safety Report 9379432 (Version 1)
Quarter: 2013Q3

REPORT INFORMATION
  Report Type: Spontaneous
  Country: BR (occurrence: BR)
  Receive Date: 20130702
  Receipt Date: 20130702
  Transmission Date: 20140515
  Serious: Yes (Hospitalization, Other)
  Sender: FDA-Public Use
  Company Number: BR-PFIZER INC-2013194257

PATIENT
  Sex: Female

DRUGS (4)
  1. ATENOLOL [Suspect]
     Dosage: 25 MG, UNK
     Route: 065
     Dates: start: 2009, end: 201304
  2. METOPROLOL TARTRATE [Suspect]
     Dosage: 100 MG, 2X/DAY
     Route: 065
     Dates: start: 201304, end: 201306
  3. SELOZOK [Suspect]
     Dosage: 25 MG, 2X/DAY
     Route: 048
     Dates: start: 2009, end: 2009
  4. SELOZOK [Suspect]
     Dosage: 100 MG, 2X/DAY
     Route: 048
     Dates: start: 201306

REACTIONS (4)
  - Cardiac assistance device user [Unknown]
  - Electrocardiogram QT prolonged [Recovered/Resolved]
  - Nausea [Recovered/Resolved]
  - Dizziness [Recovered/Resolved]
